FAERS Safety Report 15854776 (Version 1)
Quarter: 2019Q1

REPORT INFORMATION
  Report Type: Spontaneous
  Country: JP (occurrence: JP)
  Receive Date: 20190122
  Receipt Date: 20190122
  Transmission Date: 20190417
  Serious: Yes (Hospitalization)
  Sender: FDA-Public Use
  Company Number: JP-PFIZER INC-2018515058

PATIENT
  Age: 46 Year
  Sex: Male
  Weight: 95.2 kg

DRUGS (10)
  1. EFFEXOR [Suspect]
     Active Substance: VENLAFAXINE HYDROCHLORIDE
     Indication: DYSPHONIA
  2. CONTOMIN [CHLORPROMAZINE HYDROCHLORIDE] [Concomitant]
     Dosage: 250 MG, SINGLE (10 TABLETS)
     Route: 048
     Dates: start: 20181210, end: 20181210
  3. EFFEXOR [Suspect]
     Active Substance: VENLAFAXINE HYDROCHLORIDE
     Indication: DEPRESSION
     Dosage: 37.5 MG, 1X/DAY
     Route: 048
     Dates: start: 20181024, end: 20181107
  4. SELENICA R [Concomitant]
     Active Substance: VALPROATE SODIUM
     Indication: AFFECT LABILITY
     Dosage: 200 MG, 1X/DAY
     Route: 048
     Dates: start: 20181121, end: 20181205
  5. EFFEXOR [Suspect]
     Active Substance: VENLAFAXINE HYDROCHLORIDE
     Indication: ANXIETY
     Dosage: 75 MG, 1X/DAY
     Route: 048
     Dates: start: 20181108, end: 20181210
  6. BENZALIN [NITRAZEPAM] [Suspect]
     Active Substance: NITRAZEPAM
     Dosage: 5 MG, 1X/DAY
     Route: 048
     Dates: start: 20181122, end: 20181209
  7. SELENICA R [Concomitant]
     Active Substance: VALPROATE SODIUM
     Dosage: 400 MG, 1X/DAY
     Route: 048
     Dates: start: 20181206, end: 20181210
  8. BENZALIN [NITRAZEPAM] [Suspect]
     Active Substance: NITRAZEPAM
     Indication: INSOMNIA
     Dosage: 10 MG, 1X/DAY
     Route: 048
     Dates: start: 20181010, end: 20181121
  9. BENZALIN [NITRAZEPAM] [Suspect]
     Active Substance: NITRAZEPAM
     Dosage: 5 MG X30 TABLTES, SINGLE
     Route: 048
     Dates: start: 20181210, end: 20181210
  10. CONTOMIN [CHLORPROMAZINE HYDROCHLORIDE] [Concomitant]
     Indication: INSOMNIA
     Dosage: 25 MG, 1X/DAY
     Route: 048
     Dates: start: 20181121, end: 20181209

REACTIONS (3)
  - Irritability [Unknown]
  - Suicide attempt [Recovered/Resolved]
  - Aggression [Unknown]

NARRATIVE: CASE EVENT DATE: 20181209
